FAERS Safety Report 7389778-5 (Version None)
Quarter: 2011Q2

REPORT INFORMATION
  Report Type: 
  Country: None (occurrence: None)
  Receive Date: 20110401
  Receipt Date: 20110307
  Transmission Date: 20111010
  Serious: No
  Sender: FDA-Public Use
  Company Number: US-B.I. PHARMACEUTICALS,INC./RIDGEFIELD-2011-BP-07875BP

PATIENT
  Age: 68 Year
  Sex: Female

DRUGS (7)
  1. LISINOPRIL [Concomitant]
     Indication: HYPERTENSION
     Dosage: 10 MG
     Route: 048
     Dates: start: 20080101
  2. TOPROL-XL [Concomitant]
     Indication: HYPERTENSION
     Dosage: 50 MG
     Route: 048
     Dates: start: 20080101
  3. CELEBREX [Concomitant]
     Indication: ARTHRITIS
     Dosage: 200 MG
     Route: 048
     Dates: start: 20060101
  4. PRADAXA [Suspect]
     Indication: CEREBROVASCULAR ACCIDENT PROPHYLAXIS
     Dosage: 300 MG
     Route: 048
     Dates: start: 20110201
  5. NEXIUM [Concomitant]
     Indication: DYSPEPSIA
     Dosage: 40 MG
     Route: 048
     Dates: start: 20080101
  6. SIMVASTATIN [Concomitant]
     Indication: BLOOD CHOLESTEROL INCREASED
     Dosage: 80 MG
     Route: 048
     Dates: start: 20080101
  7. LIBREX [Concomitant]
     Indication: ABDOMINAL DISCOMFORT
     Route: 048
     Dates: start: 20090101

REACTIONS (3)
  - NASOPHARYNGITIS [None]
  - GINGIVAL SWELLING [None]
  - GINGIVAL PAIN [None]
